FAERS Safety Report 8129772 (Version 6)
Quarter: 2014Q4

REPORT INFORMATION
  Report Type: Report from Study
  Country: US (occurrence: US)
  Receive Date: 20110909
  Receipt Date: 20141031
  Transmission Date: 20150529
  Serious: Yes (Hospitalization, Other)
  Sender: FDA-Public Use
  Company Number: PHHY2011US40887

PATIENT
  Age: 68 Year
  Sex: Female
  Weight: 67.13 kg

DRUGS (2)
  1. EXJADE [Suspect]
     Active Substance: DEFERASIROX
     Indication: IRON OVERLOAD
     Dosage: 1250 MG, DAILY
     Route: 048
     Dates: start: 20101202, end: 20111205
  2. EXJADE [Suspect]
     Active Substance: DEFERASIROX
     Indication: DEFICIENCY ANAEMIA
     Dosage: 750 MG, QD
     Route: 048

REACTIONS (11)
  - Aplasia [Unknown]
  - Nausea [Not Recovered/Not Resolved]
  - Dehydration [Unknown]
  - Arthralgia [Unknown]
  - Abdominal pain upper [Unknown]
  - Breast cancer [Unknown]
  - Haemochromatosis [Unknown]
  - Deficiency anaemia [Unknown]
  - Hepatic enzyme increased [Unknown]
  - Diarrhoea [Unknown]
  - Vomiting [Not Recovered/Not Resolved]

NARRATIVE: CASE EVENT DATE: 20110512
